FAERS Safety Report 9521677 (Version 1)
Quarter: 2013Q1

REPORT INFORMATION
  Report Type: Spontaneous
  Country: US (occurrence: None)
  Receive Date: 20130305
  Receipt Date: 20130305
  Transmission Date: 20140127
  Serious: Yes (Other)
  Sender: FDA-Public Use
  Company Number: 163-21880-12072958

PATIENT
  Sex: Male

DRUGS (1)
  1. REVLIMID (LENALIDOMIDE) (CAPSULES) [Suspect]
     Indication: LYMPHOCYTIC LEUKAEMIA
     Dosage: M-W-F
     Route: 048
     Dates: start: 201111

REACTIONS (3)
  - Renal failure [None]
  - Diarrhoea [None]
  - Muscle spasms [None]
